FAERS Safety Report 8598474-8 (Version None)
Quarter: 2012Q3

REPORT INFORMATION
  Report Type: 
  Country: None (occurrence: None)
  Receive Date: 20120816
  Receipt Date: 20120812
  Transmission Date: 20120928
  Serious: Yes (Other)
  Sender: FDA-Public Use
  Company Number: PHHY2012BR058159

PATIENT
  Age: 70 Year
  Sex: Male

DRUGS (4)
  1. ZOLEDRONOC ACID [Suspect]
     Dosage: 5MG/100ML
     Route: 042
     Dates: start: 20120604
  2. CALCIUM PHOSPHATE [Concomitant]
     Dosage: UNK UKN, BID
  3. DEXALGEN [Concomitant]
     Dosage: 3 DF, UNK
  4. ACETAMINOPHEN [Concomitant]
     Indication: PAIN
     Dosage: UNK UKN, UNK

REACTIONS (6)
  - INFLUENZA LIKE ILLNESS [None]
  - OSTEOARTHRITIS [None]
  - ERYTHEMA [None]
  - CHONDROCALCINOSIS [None]
  - BACK PAIN [None]
  - OSTEOPOROSIS [None]
